FAERS Safety Report 9031485 (Version 6)
Quarter: 2013Q4

REPORT INFORMATION
  Report Type: Report from Study
  Country: DE (occurrence: DE)
  Receive Date: 20130124
  Receipt Date: 20131230
  Transmission Date: 20140711
  Serious: Yes (Death, Life-Threatening, Hospitalization, Other)
  Sender: FDA-Public Use
  Company Number: DE-PFIZER INC-2013019629

PATIENT
  Age: 62 Year
  Sex: Male
  Weight: 75.5 kg

DRUGS (32)
  1. IRINOTECAN HCL [Suspect]
     Indication: GLIOBLASTOMA
     Dosage: 230 MG, 1 IN 2 WK
     Route: 042
     Dates: start: 20110914
  2. IRINOTECAN HCL [Suspect]
     Dosage: 230 MG, 1 IN 2 WK
     Route: 042
     Dates: start: 20111012
  3. BEVACIZUMAB [Suspect]
     Indication: GLIOBLASTOMA
     Dosage: 700 MG, 1 IN 2 WK
     Route: 042
     Dates: start: 20110803
  4. BEVACIZUMAB [Suspect]
     Dosage: 700 MG, 1 IN 2 WK
     Route: 042
     Dates: start: 20111109
  5. COTRIM [Suspect]
     Dosage: 4320 MG
     Dates: start: 20110922, end: 20111004
  6. COTRIM [Suspect]
     Dosage: 3-3-3
     Dates: start: 20110930, end: 20111007
  7. KLACID PRO [Suspect]
     Dosage: 1000 MG, 2X/DAY
     Dates: start: 20110922, end: 20111004
  8. KLACID PRO [Suspect]
     Dosage: 2000 MG, UNK
     Dates: start: 20110930, end: 20111007
  9. PANTOPRAZOL [Concomitant]
     Dosage: 40 MG, UNK
     Dates: start: 20110713
  10. DELIX [Concomitant]
     Dosage: 2.5 MG, UNK
     Dates: start: 20110713, end: 20110930
  11. FORTECORTIN [Concomitant]
     Dosage: 20 MG, UNK
     Dates: start: 20110713, end: 20110921
  12. DIPYRONE [Concomitant]
     Dosage: 120 DROPS, UNK
     Dates: start: 20110713, end: 20110921
  13. DIPYRONE [Concomitant]
     Dosage: 160 DROPS, DAILY
     Dates: start: 20130309, end: 20130705
  14. KEPPRA [Concomitant]
     Dosage: 1500 MG, UNK
     Dates: start: 20110713, end: 20130705
  15. KEPPRA [Concomitant]
     Dosage: 1500 MG, UNK
     Dates: start: 20111006
  16. FRAXIPARIN [Concomitant]
     Dosage: 0.3 ML, UNK
     Dates: start: 20110713, end: 20110921
  17. FRAXIPARIN [Concomitant]
     Dosage: 0.4 ML, UNK
     Dates: start: 20130304, end: 20130309
  18. FURADANTIN RETARD [Concomitant]
     Dosage: 100 MG, 2X/DAY
     Dates: start: 20110908, end: 20110916
  19. TALVOSILEN [Concomitant]
     Dosage: 2000/40 MG, UNK
     Dates: start: 20120102, end: 20130307
  20. RAMIPRIL [Concomitant]
     Dosage: 1 MG, 2X/DAY, 1 - 0 - 1
     Dates: start: 20120102, end: 20130705
  21. NADROPARIN CALCIUM [Concomitant]
  22. CLEXANE [Concomitant]
     Dosage: 16000 IU, UNK
     Dates: start: 20110930
  23. CLEXANE [Concomitant]
     Dosage: 1.6 ML, UNK
     Dates: start: 20110930, end: 20111223
  24. DEXAMETHASONE [Concomitant]
     Dosage: 12 MG, UNK
     Dates: start: 20110713, end: 20110714
  25. DEXAMETHASONE [Concomitant]
     Dosage: 6 MG, UNK
     Dates: start: 20110715, end: 20110717
  26. DEXAMETHASONE [Concomitant]
     Dosage: 12 MG, UNK
     Dates: start: 20130702, end: 2013
  27. DEXAMETHASONE [Concomitant]
     Dosage: 6 MG, UNK
     Dates: start: 2013
  28. DEXAMETHASONE [Concomitant]
     Dosage: 8 MG, UNK
     Dates: start: 20130712, end: 20130712
  29. DEXAMETHASONE [Concomitant]
     Dosage: 8 MG, UNK
     Dates: start: 20130726, end: 20130726
  30. PREDNISONE [Concomitant]
     Dosage: 20 MG, UNK
     Dates: start: 20110930
  31. LEVETIRACETAM [Concomitant]
     Dosage: 500 MG, UNK
     Dates: start: 20130705
  32. DELIX PLUS [Concomitant]
     Dosage: 5/25 MG, UNK
     Dates: start: 20130705

REACTIONS (5)
  - General physical condition abnormal [Recovered/Resolved]
  - General physical condition abnormal [Fatal]
  - Pulmonary embolism [Recovered/Resolved]
  - Renal failure acute [Recovered/Resolved]
  - General physical health deterioration [Unknown]
